FAERS Safety Report 7209862-6 (Version None)
Quarter: 2011Q1

REPORT INFORMATION
  Report Type: 
  Country: None (occurrence: None)
  Receive Date: 20110104
  Receipt Date: 20100901
  Transmission Date: 20110831
  Serious: Yes (Other)
  Sender: FDA-Public Use
  Company Number: US-BAYER-200920303NA

PATIENT
  Sex: Male
  Weight: 76.364 kg

DRUGS (30)
  1. PRILOSEC [Concomitant]
  2. DIAZEPAM [Concomitant]
  3. ZOLPIDEM [Concomitant]
  4. PROSCAR [Concomitant]
  5. FUROSEMIDE [Concomitant]
  6. CIPROFLOXACIN [Concomitant]
  7. MAGNEVIST [Suspect]
     Route: 042
     Dates: start: 20020828, end: 20020828
  8. HYDROMORPHONE HCL [Concomitant]
  9. OPTIMARK [Suspect]
     Indication: NUCLEAR MAGNETIC RESONANCE IMAGING
     Route: 042
     Dates: start: 20041014, end: 20041014
  10. GADOLINIUM IN UNSPECIFIED DRUG [Suspect]
     Dosage: 1980'S
  11. GADOLINIUM IN UNSPECIFIED DRUG [Suspect]
     Dosage: UNK
     Dates: start: 20020927
  12. PROZAC [Concomitant]
  13. ALPRAZOLAM [Concomitant]
  14. HYDROCHLOROTHIAZIDE [Concomitant]
  15. AZITHROMYCIN [Concomitant]
  16. MAGNEVIST [Suspect]
     Dates: start: 20021230, end: 20021230
  17. SERTRALINE [Concomitant]
  18. PROCHLORPERAZINE [Concomitant]
  19. FLUOXETINE [Concomitant]
  20. DEXAMETHASONE [Concomitant]
  21. LIPITOR [Concomitant]
  22. VISIPAQUE [IODINE,IODIXANOL] [Concomitant]
     Indication: ARTERIOGRAM CORONARY
     Dates: start: 20061115, end: 20061115
  23. MEPERIDINE HCL [Concomitant]
  24. KETOCONAZOLE [Concomitant]
  25. MAGNEVIST [Suspect]
     Dates: start: 20020927, end: 20020927
  26. OPTIMARK [Suspect]
     Dates: start: 20051017, end: 20051017
  27. OXYCODONE HCL [Concomitant]
  28. MAGNEVIST [Suspect]
     Indication: NUCLEAR MAGNETIC RESONANCE IMAGING
     Route: 042
     Dates: start: 19990624, end: 19990624
  29. MAGNEVIST [Suspect]
     Route: 042
     Dates: start: 20020903, end: 20020903
  30. TRAZODONE [Concomitant]

REACTIONS (26)
  - SKIN HYPERTROPHY [None]
  - MOBILITY DECREASED [None]
  - MUSCLE TIGHTNESS [None]
  - ASTHENIA [None]
  - SKIN DISCOLOURATION [None]
  - EXERCISE TOLERANCE DECREASED [None]
  - MUSCULAR WEAKNESS [None]
  - NEPHROGENIC SYSTEMIC FIBROSIS [None]
  - SKIN TIGHTNESS [None]
  - FATIGUE [None]
  - PRURITUS GENERALISED [None]
  - DEFORMITY [None]
  - MUSCLE SPASMS [None]
  - JOINT RANGE OF MOTION DECREASED [None]
  - PRURITUS [None]
  - PAIN [None]
  - HYPOAESTHESIA [None]
  - JOINT SWELLING [None]
  - ARTHRALGIA [None]
  - MYALGIA [None]
  - GAIT DISTURBANCE [None]
  - SKIN HYPERPIGMENTATION [None]
  - PAIN IN EXTREMITY [None]
  - DYSPNOEA [None]
  - MUSCULOSKELETAL STIFFNESS [None]
  - SKIN INDURATION [None]
